FAERS Safety Report 10302800 (Version 1)
Quarter: 2014Q3

REPORT INFORMATION
  Report Type: Report from Study
  Country: US (occurrence: US)
  Receive Date: 20140714
  Receipt Date: 20140714
  Transmission Date: 20150326
  Serious: Yes (Other)
  Sender: FDA-Public Use
  Company Number: PHEH2014US013928

PATIENT
  Sex: Female

DRUGS (1)
  1. GILENYA [Suspect]
     Active Substance: FINGOLIMOD HYDROCHLORIDE
     Indication: MULTIPLE SCLEROSIS
     Dosage: 0.5 MG, QD
     Route: 048
     Dates: start: 20111208

REACTIONS (7)
  - Osteoarthritis [Unknown]
  - Fungal infection [Unknown]
  - Central nervous system lesion [Unknown]
  - Scleroderma [Unknown]
  - Erythema [Unknown]
  - Blood test abnormal [Unknown]
  - Osteochondrosis [Unknown]
